FAERS Safety Report 7658333-1 (Version None)
Quarter: 2011Q3

REPORT INFORMATION
  Report Type: 
  Country: None (occurrence: None)
  Receive Date: 20110802
  Receipt Date: 20110720
  Transmission Date: 20111222
  Serious: Yes (Hospitalization)
  Sender: FDA-Public Use
  Company Number: 2011AP001440

PATIENT
  Age: 90 Year
  Sex: Female

DRUGS (10)
  1. CALCIUM (CALCIUM) [Concomitant]
  2. FUROSEMIDE [Concomitant]
  3. COLECALCIFEROL (COLECALCIFEROL) [Concomitant]
  4. CODEINE PHOSPHATE (CODEINE PHOSPHATE) [Concomitant]
  5. ACETAMINOPHEN [Concomitant]
  6. FOLIC ACID [Concomitant]
  7. CLARITHROMYCIN [Suspect]
     Indication: LOWER RESPIRATORY TRACT INFECTION
     Dosage: 500 MG; PO
     Route: 048
     Dates: start: 20110322, end: 20110328
  8. ALLOPURINOL [Concomitant]
  9. WARFARIN SODIUM [Suspect]
     Indication: PULMONARY EMBOLISM
  10. OMEPRAZOLE [Concomitant]

REACTIONS (2)
  - EPISTAXIS [None]
  - INTERNATIONAL NORMALISED RATIO INCREASED [None]
